FAERS Safety Report 12807151 (Version 3)
Quarter: 2016Q4

REPORT INFORMATION
  Report Type: Report from Study
  Country: US (occurrence: US)
  Receive Date: 20161004
  Receipt Date: 20161207
  Transmission Date: 20170207
  Serious: Yes (Death, Hospitalization, Other)
  Sender: FDA-Public Use
  Company Number: US-BAYER-2016-171802

PATIENT
  Age: 75 Year
  Sex: Male

DRUGS (10)
  1. XTANDI [Concomitant]
     Active Substance: ENZALUTAMIDE
     Dosage: 4 DF, QD
  2. ZOFRAN [Concomitant]
     Active Substance: ONDANSETRON HYDROCHLORIDE
     Indication: NAUSEA
     Dosage: 8 MG, Q6 PRN
  3. REMERON [Concomitant]
     Active Substance: MIRTAZAPINE
     Dosage: 30 MG, HS
  4. ESZOPICLONE. [Concomitant]
     Active Substance: ESZOPICLONE
     Indication: SLEEP DISORDER THERAPY
     Dosage: 2 MG NIGHTLY AS NEEDED
  5. KETOROLAC [Concomitant]
     Active Substance: KETOROLAC\KETOROLAC TROMETHAMINE
     Indication: PAIN
     Dosage: 10 MG Q8 PRN
  6. XOFIGO [Suspect]
     Active Substance: RADIUM RA-223 DICHLORIDE
     Indication: PROSTATE CANCER STAGE IV
     Dosage: 119.90, ONCE EVERY 28 DAYS
     Route: 042
     Dates: start: 20160722, end: 20160722
  7. ZYRTEC [Concomitant]
     Active Substance: CETIRIZINE HYDROCHLORIDE
     Dosage: 10 MG, QD
  8. XOFIGO [Suspect]
     Active Substance: RADIUM RA-223 DICHLORIDE
     Indication: METASTASES TO BONE
  9. PREDNISONE. [Concomitant]
     Active Substance: PREDNISONE
     Dosage: 10 MG, BID
  10. VESICARE [Concomitant]
     Active Substance: SOLIFENACIN SUCCINATE
     Dosage: 5 MG, QA.M.

REACTIONS (24)
  - Anaemia [None]
  - Asthenia [None]
  - Cough [None]
  - Oedema peripheral [None]
  - Death [Fatal]
  - Fall [None]
  - Arthralgia [None]
  - Myalgia [None]
  - Fatigue [None]
  - Skin abrasion [None]
  - Hypophagia [None]
  - Febrile neutropenia [Recovered/Resolved]
  - Joint swelling [None]
  - Weight decreased [None]
  - Back pain [None]
  - Leukopenia [None]
  - Malaise [None]
  - Musculoskeletal chest pain [None]
  - Hospitalisation [None]
  - Bone pain [None]
  - Joint effusion [None]
  - Areflexia [None]
  - Infection [None]
  - Gait disturbance [None]

NARRATIVE: CASE EVENT DATE: 201608
